FAERS Safety Report 26165762 (Version 1)
Quarter: 2025Q4

REPORT INFORMATION
  Report Type: Spontaneous
  Country: EU (occurrence: EU)
  Receive Date: 20251216
  Receipt Date: 20251216
  Transmission Date: 20260118
  Serious: Yes (Other)
  Sender: MYLAN
  Company Number: None

PATIENT
  Age: 89 Year
  Sex: Female

DRUGS (1)
  1. FENTANYL [Suspect]
     Active Substance: FENTANYL
     Indication: Pain
     Dosage: 200 MICROGRAM, Q3D (72 HOURS) (LC)
     Dates: end: 20250403

REACTIONS (1)
  - Faecaloma [Recovered/Resolved]

NARRATIVE: CASE EVENT DATE: 20250412
